FAERS Safety Report 7908712-X (Version None)
Quarter: 2011Q4

REPORT INFORMATION
  Report Type: 
  Country: None (occurrence: None)
  Receive Date: 20111111
  Receipt Date: 20111105
  Transmission Date: 20120403
  Serious: No
  Sender: FDA-Public Use
  Company Number: US-PFIZER INC-2011256181

PATIENT
  Sex: Male
  Weight: 86.168 kg

DRUGS (3)
  1. SYNTHROID [Concomitant]
     Indication: THYROID DISORDER
     Dosage: 0.125 MG, DAILY
  2. TOVIAZ [Suspect]
     Indication: PROSTATIC DISORDER
     Dosage: 8 MG, UNK
     Dates: start: 20111001
  3. TOVIAZ [Suspect]
     Indication: BLADDER DISORDER
     Dosage: 4 MG, 1X/DAY
     Route: 048
     Dates: start: 20111019, end: 20111001

REACTIONS (2)
  - DRUG INEFFECTIVE [None]
  - CONSTIPATION [None]
